FAERS Safety Report 17880723 (Version 1)
Quarter: 2020Q2

REPORT INFORMATION
  Report Type: Spontaneous
  Country: US (occurrence: US)
  Receive Date: 20200609
  Receipt Date: 20200609
  Transmission Date: 20200714
  Serious: No
  Sender: FDA-Public Use
  Company Number: None

PATIENT
  Sex: Male

DRUGS (2)
  1. METHYLPREDNISOLONE 4MG [Suspect]
     Active Substance: METHYLPREDNISOLONE
     Route: 048
     Dates: start: 20200125
  2. YONSA [Concomitant]
     Active Substance: ABIRATERONE ACETATE

REACTIONS (3)
  - Prostatic specific antigen increased [None]
  - Drug ineffective [None]
  - Paradoxical drug reaction [None]
